FAERS Safety Report 7034685-0 (Version None)
Quarter: 2010Q4

REPORT INFORMATION
  Report Type: 
  Country: None (occurrence: None)
  Receive Date: 20101008
  Receipt Date: 20100924
  Transmission Date: 20110411
  Serious: Yes (Hospitalization)
  Sender: FDA-Public Use
  Company Number: PHHY2010FR65846

PATIENT
  Age: 35 Year
  Sex: Female

DRUGS (5)
  1. PARLODEL [Suspect]
     Dosage: UNK
     Route: 048
     Dates: end: 20100313
  2. CALTRATE [Concomitant]
  3. HYDROCORTISONE [Concomitant]
  4. LEVOTHYROXINE SODIUM [Concomitant]
  5. FLUDROCORTISONE [Concomitant]

REACTIONS (12)
  - CEREBRAL ARTERY STENOSIS [None]
  - CEREBRAL VASOCONSTRICTION [None]
  - CONVULSION [None]
  - DYSARTHRIA [None]
  - ENCEPHALOPATHY [None]
  - HEADACHE [None]
  - NAUSEA [None]
  - PARTIAL SEIZURES [None]
  - POSTICTAL STATE [None]
  - PULMONARY ARTERIAL PRESSURE INCREASED [None]
  - TONGUE BITING [None]
  - VISION BLURRED [None]
